FAERS Safety Report 25987589 (Version 1)
Quarter: 2025Q4

REPORT INFORMATION
  Report Type: Spontaneous
  Country: US (occurrence: US)
  Receive Date: 20251103
  Receipt Date: 20251103
  Transmission Date: 20260117
  Serious: No
  Sender: ELI LILLY AND COMPANY
  Company Number: US-ELI_LILLY_AND_COMPANY-US202510018488

PATIENT
  Sex: Male

DRUGS (3)
  1. KISUNLA [Suspect]
     Active Substance: DONANEMAB-AZBT
     Indication: Product used for unknown indication
     Dosage: UNK UNK, UNKNOWN (1ST)
     Route: 065
  2. KISUNLA [Suspect]
     Active Substance: DONANEMAB-AZBT
     Dosage: UNK UNK, UNKNOWN (2ND)
     Route: 065
  3. KISUNLA [Suspect]
     Active Substance: DONANEMAB-AZBT
     Dosage: UNK UNK, UNKNOWN (3RD)
     Route: 065

REACTIONS (2)
  - Infusion related reaction [Unknown]
  - Infusion related reaction [Unknown]
